FAERS Safety Report 19032439 (Version 2)
Quarter: 2021Q2

REPORT INFORMATION
  Report Type: Report from Study
  Country: IL (occurrence: IL)
  Receive Date: 20210319
  Receipt Date: 20210405
  Transmission Date: 20210717
  Serious: Yes (Hospitalization)
  Sender: FDA-Public Use
  Company Number: IL-EMD SERONO-9197505

PATIENT
  Age: 60 Year
  Sex: Female
  Weight: 59 kg

DRUGS (2)
  1. C?MET KINASE INHIBITOR (MSC2156119J) [Suspect]
     Active Substance: TEPOTINIB
     Route: 048
     Dates: start: 20201117
  2. C?MET KINASE INHIBITOR (MSC2156119J) [Suspect]
     Active Substance: TEPOTINIB
     Indication: NON-SMALL CELL LUNG CANCER
     Route: 048
     Dates: start: 20200518, end: 20201020

REACTIONS (1)
  - Oedema peripheral [Not Recovered/Not Resolved]

NARRATIVE: CASE EVENT DATE: 20200908
